FAERS Safety Report 6866440-6 (Version None)
Quarter: 2010Q3

REPORT INFORMATION
  Report Type: 
  Country: None (occurrence: None)
  Receive Date: 20100722
  Receipt Date: 20100715
  Transmission Date: 20110219
  Serious: Yes (Disabling, Other)
  Sender: FDA-Public Use
  Company Number: JP-SANOFI-AVENTIS-2010SA029487

PATIENT
  Age: 81 Year
  Sex: Female
  Weight: 38 kg

DRUGS (8)
  1. PLAVIX [Suspect]
     Route: 048
     Dates: start: 20080915, end: 20080915
  2. PLAVIX [Suspect]
     Route: 048
     Dates: start: 20080916
  3. ASPIRIN [Concomitant]
     Route: 048
     Dates: start: 20080915
  4. LIPITOR [Concomitant]
     Route: 048
     Dates: start: 20080915
  5. ARTIST [Concomitant]
     Route: 048
     Dates: start: 20080915
  6. GASTER D [Concomitant]
     Route: 048
     Dates: start: 20080915
  7. LASIX [Concomitant]
     Route: 048
     Dates: start: 20080924
  8. BLOPRESS [Concomitant]
     Route: 048
     Dates: start: 20080919

REACTIONS (2)
  - EMBOLIC CEREBRAL INFARCTION [None]
  - URINARY TRACT INFECTION [None]
